FAERS Safety Report 9311760 (Version 1)
Quarter: 2013Q2

REPORT INFORMATION
  Report Type: Report from Study
  Country: IT (occurrence: IT)
  Receive Date: 20130528
  Receipt Date: 20130528
  Transmission Date: 20140414
  Serious: Yes (Death, Other)
  Sender: FDA-Public Use
  Company Number: IT-009507513-1305ITA014828

PATIENT
  Age: 75 Year
  Sex: Female

DRUGS (8)
  1. MK-0000 (113) [Suspect]
  2. SINVACOR 40 MG COMPRESSE RIVESTITE CON FILM [Suspect]
     Indication: DYSLIPIDAEMIA
     Dosage: 40 MG, QD
     Route: 048
     Dates: start: 2003, end: 20130407
  3. LOSAZID [Suspect]
     Dosage: UNK
     Route: 048
     Dates: start: 200602, end: 20130407
  4. METFORMIN HYDROCHLORIDE [Concomitant]
     Dosage: 1500 MG, QD
     Route: 048
     Dates: start: 200510
  5. NOVO-NORM [Concomitant]
     Dosage: UNK
     Route: 048
     Dates: start: 2006
  6. CALCIUM CARBONATE [Concomitant]
     Dosage: UNK
     Route: 048
     Dates: start: 200708
  7. TICLOPIDINE HYDROCHLORIDE [Concomitant]
     Dosage: UNK
     Route: 048
     Dates: start: 2000
  8. NORVASC [Concomitant]
     Dosage: UNK
     Route: 048
     Dates: start: 2003

REACTIONS (1)
  - Salivary gland cancer [Fatal]
